FAERS Safety Report 18516216 (Version 1)
Quarter: 2020Q4

REPORT INFORMATION
  Report Type: Spontaneous
  Country: US (occurrence: US)
  Receive Date: 20201118
  Receipt Date: 20201118
  Transmission Date: 20210114
  Serious: No
  Sender: FDA-Public Use
  Company Number: None

PATIENT
  Age: 80 Year
  Sex: Female
  Weight: 66.6 kg

DRUGS (6)
  1. TURMERIC [Concomitant]
     Active Substance: HERBALS\TURMERIC
  2. B12 COMPLEX [Concomitant]
  3. FOSTEUM PLUS [Concomitant]
  4. MAGNESIUM [Concomitant]
     Active Substance: MAGNESIUM
  5. MSM [Concomitant]
     Active Substance: DIMETHYL SULFONE
  6. CARVEDILOL. [Suspect]
     Active Substance: CARVEDILOL
     Indication: HYPERTENSION
     Route: 048

REACTIONS (7)
  - Feeling abnormal [None]
  - Skin exfoliation [None]
  - Dysphonia [None]
  - Dysphagia [None]
  - Weight increased [None]
  - Gastrointestinal disorder [None]
  - Pelvic pain [None]

NARRATIVE: CASE EVENT DATE: 20200629
